APPROVED DRUG PRODUCT: BICALUTAMIDE
Active Ingredient: BICALUTAMIDE
Strength: 50MG
Dosage Form/Route: TABLET;ORAL
Application: A076932 | Product #001
Applicant: TEVA PHARMACEUTICALS USA INC
Approved: Jul 6, 2009 | RLD: No | RS: No | Type: DISCN